FAERS Safety Report 5132252-7 (Version None)
Quarter: 2006Q4

REPORT INFORMATION
  Report Type: 
  Country: None (occurrence: None)
  Receive Date: 20061017
  Receipt Date: 20061002
  Transmission Date: 20070319
  Serious: Yes (Hospitalization)
  Sender: FDA-Public Use
  Company Number: 2006-01896

PATIENT
  Age: 73 Year
  Sex: Female
  Weight: 62 kg

DRUGS (18)
  1. VELCADE [Suspect]
     Indication: MULTIPLE MYELOMA
     Dosage: 1.00 MG/M2, INTRAVENOUS
     Route: 042
     Dates: start: 20060104, end: 20060227
  2. DEXAMETHASONE [Suspect]
     Indication: MULTIPLE MYELOMA
     Dosage: SEE IMAGE
     Route: 048
     Dates: start: 20060104, end: 20060220
  3. THALIDOMIDE (THALIDOMIDE) TABLET [Suspect]
     Indication: MULTIPLE MYELOMA
     Dosage: SEE IMAGE
     Route: 048
     Dates: start: 20060104
  4. CISPLATIN [Suspect]
     Indication: MULTIPLE MYELOMA
     Dosage: 10.00 MG/M2, INTRAVENOUS
     Route: 042
     Dates: start: 20060104
  5. DOXORUBICIN HCL [Suspect]
     Indication: MULTIPLE MYELOMA
     Dosage: 10.00 MG/M2, INTRAVENOUS
     Route: 042
     Dates: start: 20060104
  6. CYCLOPHOSPHAMIDE [Suspect]
     Indication: MULTIPLE MYELOMA
     Dosage: 400.00 MG/M2, INTRAVENOUS
     Route: 042
     Dates: start: 20060104
  7. ETOPOSIDE [Suspect]
     Indication: MULTIPLE MYELOMA
     Dosage: 40.00 MG/M2, INTRAVENOUS
     Route: 042
     Dates: start: 20060104, end: 20060220
  8. SYNTHROID [Concomitant]
  9. LORTAB [Concomitant]
  10. RESTORIL [Concomitant]
  11. DITROPAN [Concomitant]
  12. LOVENOX [Concomitant]
  13. ESCITALOPRAM OXALATE [Concomitant]
  14. LORAZEPAM [Concomitant]
  15. ACYCLOVIR [Concomitant]
  16. METOPROLOL TARTRATE [Concomitant]
  17. LEVAQUIN [Concomitant]
  18. MIRALAX [Concomitant]

REACTIONS (5)
  - ARTERIOSPASM CORONARY [None]
  - CARDIAC STRESS TEST ABNORMAL [None]
  - CATHETER RELATED COMPLICATION [None]
  - CHEST PAIN [None]
  - CORONARY ARTERY DISEASE [None]
